FAERS Safety Report 4918692-7 (Version None)
Quarter: 2006Q1

REPORT INFORMATION
  Report Type: 
  Country: None (occurrence: None)
  Receive Date: 20060221
  Receipt Date: 20060221
  Transmission Date: 20060701
  Serious: Yes (Other)
  Sender: FDA-Public Use
  Company Number: None

PATIENT
  Age: 58 Year
  Sex: Female

DRUGS (3)
  1. BUPROPION SR 150 MG TEVA [Suspect]
     Indication: DISEASE RECURRENCE
     Dosage: 150 MG 1 Q AM PO
     Route: 048
  2. BUPROPION SR 150 MG TEVA [Suspect]
     Indication: MAJOR DEPRESSION
     Dosage: 150 MG 1 Q AM PO
     Route: 048
  3. ZOLOFT [Concomitant]

REACTIONS (8)
  - DEPRESSION [None]
  - DISEASE RECURRENCE [None]
  - EARLY MORNING AWAKENING [None]
  - FEELING ABNORMAL [None]
  - MOOD ALTERED [None]
  - PHARMACEUTICAL PRODUCT COMPLAINT [None]
  - SOCIAL AVOIDANT BEHAVIOUR [None]
  - TEARFULNESS [None]
